FAERS Safety Report 8880309 (Version 2)
Quarter: 2013Q2

REPORT INFORMATION
  Report Type: Spontaneous
  Country: US (occurrence: US)
  Receive Date: 20121031
  Receipt Date: 20130508
  Transmission Date: 20140414
  Serious: Yes (Other)
  Sender: FDA-Public Use
  Company Number: US-ASTRAZENECA-2012SE80410

PATIENT
  Age: 57 Year
  Sex: Female
  Weight: 54.4 kg

DRUGS (7)
  1. SYMBICORT [Suspect]
     Indication: DYSPNOEA
     Route: 055
  2. CHANTIX [Suspect]
     Indication: EX-TOBACCO USER
     Route: 065
     Dates: start: 2011
  3. CHANTIX [Suspect]
     Indication: EX-TOBACCO USER
     Route: 065
  4. PRISTIQ [Suspect]
     Indication: DEPRESSION
     Route: 065
  5. SPIRIVA [Suspect]
     Indication: DYSPNOEA
     Route: 065
  6. WELLBUTRIN SR [Suspect]
     Route: 065
  7. UNSPECIFIED NEBULIZER [Concomitant]
     Indication: DYSPNOEA

REACTIONS (4)
  - Dyspnoea [Unknown]
  - Lung neoplasm malignant [Unknown]
  - Chronic obstructive pulmonary disease [Unknown]
  - Impaired work ability [Unknown]
